FAERS Safety Report 6481775 (Version 2)
Quarter: 2013Q2

REPORT INFORMATION
  Report Type: Spontaneous
  Country: US (occurrence: US)
  Receive Date: 20071206
  Receipt Date: 20130404
  Transmission Date: 20140414
  Serious: Yes (Other)
  Sender: FDA-Public Use
  Company Number: US-AMGEN-US204217

PATIENT
  Age: 51 Year
  Sex: Male

DRUGS (2)
  1. ENBREL [Suspect]
     Indication: PSORIATIC ARTHROPATHY
     Dosage: 50 MG, 2 TIMES/WK
     Route: 058
     Dates: start: 20030601
  2. ENBREL [Suspect]
     Indication: PSORIASIS

REACTIONS (7)
  - Squamous cell carcinoma of skin [Not Recovered/Not Resolved]
  - Muscle spasms [Recovered/Resolved]
  - Abdominal pain [Unknown]
  - Constipation [Unknown]
  - Incision site infection [Recovered/Resolved]
  - Psoriasis [Not Recovered/Not Resolved]
  - Injection site pain [Unknown]
